FAERS Safety Report 12308869 (Version 1)
Quarter: 2016Q2

REPORT INFORMATION
  Report Type: Spontaneous
  Country: US (occurrence: US)
  Receive Date: 20160427
  Receipt Date: 20160427
  Transmission Date: 20160815
  Serious: No
  Sender: FDA-Public Use
  Company Number: US-ASTRAZENECA-2016SE31622

PATIENT
  Age: 757 Month

DRUGS (1)
  1. MOVANTIK [Suspect]
     Active Substance: NALOXEGOL OXALATE
     Indication: CONSTIPATION
     Route: 048
     Dates: start: 201601, end: 201601

REACTIONS (3)
  - Vomiting [Unknown]
  - Gastrointestinal disorder [Unknown]
  - Nausea [Unknown]

NARRATIVE: CASE EVENT DATE: 201601
